FAERS Safety Report 10897452 (Version 1)
Quarter: 2015Q1

REPORT INFORMATION
  Report Type: Spontaneous
  Country: US (occurrence: US)
  Receive Date: 20150309
  Receipt Date: 20150309
  Transmission Date: 20150721
  Serious: No
  Sender: FDA-Public Use
  Company Number: US-PFIZER INC-2015082869

PATIENT
  Age: 26 Year
  Sex: Female
  Weight: 99 kg

DRUGS (1)
  1. VIROPTIC [Suspect]
     Active Substance: TRIFLURIDINE
     Indication: EYE INFECTION
     Dosage: UNK
     Dates: start: 20150304

REACTIONS (2)
  - Drug administration error [Unknown]
  - Eye irritation [Unknown]

NARRATIVE: CASE EVENT DATE: 201503
